FAERS Safety Report 20032722 (Version 1)
Quarter: 2021Q4

REPORT INFORMATION
  Report Type: Spontaneous
  Country: CN (occurrence: CN)
  Receive Date: 20211104
  Receipt Date: 20211104
  Transmission Date: 20220303
  Serious: Yes (Hospitalization, Other)
  Sender: FDA-Public Use
  Company Number: CN-ABBVIE-21K-035-4145338-00

PATIENT
  Age: 68 Year
  Sex: Female
  Weight: 69 kg

DRUGS (6)
  1. VENETOCLAX [Suspect]
     Active Substance: VENETOCLAX
     Indication: Acute myeloid leukaemia
     Route: 048
     Dates: start: 20211001, end: 20211014
  2. VENETOCLAX [Suspect]
     Active Substance: VENETOCLAX
     Indication: Transplant
  3. CYTARABINE HYDROCHLORIDE [Concomitant]
     Active Substance: CYTARABINE HYDROCHLORIDE
     Indication: Transplant
     Route: 041
     Dates: start: 20211002, end: 20211008
  4. CYTARABINE HYDROCHLORIDE [Concomitant]
     Active Substance: CYTARABINE HYDROCHLORIDE
     Indication: Acute myeloid leukaemia
  5. AZACITIDINE [Concomitant]
     Active Substance: AZACITIDINE
     Indication: Acute myeloid leukaemia
     Route: 058
     Dates: start: 20211001, end: 20211008
  6. AZACITIDINE [Concomitant]
     Active Substance: AZACITIDINE
     Indication: Transplant

REACTIONS (1)
  - Myelosuppression [Recovering/Resolving]

NARRATIVE: CASE EVENT DATE: 20211013
